FAERS Safety Report 9308269 (Version 1)
Quarter: 2013Q2

REPORT INFORMATION
  Report Type: Spontaneous
  Country: US (occurrence: US)
  Receive Date: 20130524
  Receipt Date: 20130524
  Transmission Date: 20140414
  Serious: Yes (Hospitalization)
  Sender: FDA-Public Use
  Company Number: US-BAYER-2013-063254

PATIENT
  Age: 18 Year
  Sex: Female
  Weight: 56.69 kg

DRUGS (7)
  1. YAZ [Suspect]
     Indication: MENOMETRORRHAGIA
  2. YASMIN [Suspect]
  3. ALBUTEROL [Concomitant]
  4. HYDROCODONE [Concomitant]
  5. LAMICTAL [Concomitant]
  6. GARDASIL [Concomitant]
  7. MULTIVITAMIN [Concomitant]

REACTIONS (2)
  - Pelvic venous thrombosis [Recovering/Resolving]
  - Deep vein thrombosis [None]
